FAERS Safety Report 8463979-7 (Version None)
Quarter: 2012Q2

REPORT INFORMATION
  Report Type: 
  Country: None (occurrence: None)
  Receive Date: 20120625
  Receipt Date: 20120622
  Transmission Date: 20120825
  Serious: Yes (Hospitalization, Other)
  Sender: FDA-Public Use
  Company Number: DE-JNJFOC-20120405527

PATIENT
  Sex: Male

DRUGS (10)
  1. GLIMEPIRIDE [Concomitant]
     Indication: DIABETES MELLITUS
  2. DARIFENACIN [Concomitant]
  3. TILIDIN N [Concomitant]
  4. ASPIRIN [Suspect]
     Indication: CORONARY ARTERY DISEASE
  5. XARELTO [Suspect]
     Indication: ILL-DEFINED DISORDER
     Route: 048
  6. DILTIAZEM HYDROCHOLORIDE [Concomitant]
  7. SIMVASTATIN [Concomitant]
  8. LORAZEPAM [Concomitant]
  9. NITROGLYCERIN [Concomitant]
  10. ACETYLCYSTEINE [Concomitant]

REACTIONS (5)
  - DUODENITIS [None]
  - GASTROINTESTINAL DISORDER [None]
  - GASTROINTESTINAL HAEMORRHAGE [None]
  - EPISTAXIS [None]
  - HAEMOGLOBIN DECREASED [None]
